FAERS Safety Report 6881807-8 (Version None)
Quarter: 2010Q3

REPORT INFORMATION
  Report Type: 
  Country: None (occurrence: None)
  Receive Date: 20100728
  Receipt Date: 20100728
  Transmission Date: 20110219
  Serious: No
  Sender: FDA-Public Use
  Company Number: None

PATIENT
  Age: 48 Year
  Sex: Female
  Weight: 91.173 kg

DRUGS (2)
  1. COLCHICINE 0.6 MG WESTWARD [Suspect]
     Indication: GOUT
     Dosage: 2 (THEN 1) -} EVERY HOUR MOUTH
     Route: 048
     Dates: start: 20100705, end: 20100706
  2. CEPHALEXIN [Suspect]
     Indication: INFECTION
     Dosage: 1, 4 TIMES DAY MOUTH
     Route: 048
     Dates: start: 20100705, end: 20100706

REACTIONS (2)
  - DIARRHOEA [None]
  - EMOTIONAL DISTRESS [None]
